FAERS Safety Report 7592129-4 (Version None)
Quarter: 2011Q3

REPORT INFORMATION
  Report Type: 
  Country: None (occurrence: None)
  Receive Date: 20110706
  Receipt Date: 20110623
  Transmission Date: 20111222
  Serious: Yes (Hospitalization)
  Sender: FDA-Public Use
  Company Number: IT-ELI_LILLY_AND_COMPANY-IT201106002508

PATIENT
  Sex: Male

DRUGS (3)
  1. POLYGELINE [Concomitant]
     Dosage: 3 ML, UNK
     Route: 042
  2. HUMULIN R [Suspect]
     Indication: HYPERGLYCAEMIA
     Dosage: 100 IU, QD
     Route: 042
     Dates: start: 20110608, end: 20110609
  3. HEPARIN [Concomitant]

REACTIONS (2)
  - STAPHYLOCOCCAL INFECTION [None]
  - HYPERPYREXIA [None]
